FAERS Safety Report 22179033 (Version 4)
Quarter: 2023Q4

REPORT INFORMATION
  Report Type: Spontaneous
  Country: DE (occurrence: DE)
  Receive Date: 20230406
  Receipt Date: 20231027
  Transmission Date: 20240110
  Serious: Yes (Hospitalization)
  Sender: FDA-Public Use
  Company Number: None

PATIENT
  Age: 33 Year
  Sex: Female
  Weight: 52 kg

DRUGS (62)
  1. SAB SIMPLEX [SIMETICONE] [Concomitant]
     Indication: Flatulence
     Dosage: 60 DROP QD [DRP] (DROP (1/12 MILLILITRE))   3 SEPARATED DOSES
     Route: 048
     Dates: end: 20011120
  2. NOREPINEPHRINE HYDROCHLORIDE, (+/-)- [Concomitant]
     Active Substance: NOREPINEPHRINE HYDROCHLORIDE, (+/-)-
     Indication: Shock
     Dosage: UNK
     Dates: start: 20011109, end: 20011203
  3. PROMETHAZINE HYDROCHLORIDE [Concomitant]
     Active Substance: PROMETHAZINE HYDROCHLORIDE
     Indication: Agitation
     Dosage: 150 MG, QD(6 SEPARATED DOSES )
     Route: 042
     Dates: end: 20011111
  4. CLONIDINE [Suspect]
     Active Substance: CLONIDINE
     Indication: Hypertension
     Dosage: UNIT DOSE=6 AMPULE
     Route: 042
     Dates: start: 20011205
  5. AMOXICILLIN\CLAVULANATE POTASSIUM [Suspect]
     Active Substance: AMOXICILLIN\CLAVULANATE POTASSIUM
     Indication: Infection
     Dosage: 6.6 G, QD (3 SEPARATED DOSES)
     Route: 042
     Dates: start: 20011121, end: 20011123
  6. FERRO-FOLSAN [FERROUS GLUCONATE;FOLIC ACID] [Concomitant]
     Indication: Iron deficiency
     Dosage: 40 DROP
     Route: 048
     Dates: end: 20011128
  7. POTASSIUM CHLORIDE [Concomitant]
     Active Substance: POTASSIUM CHLORIDE
     Indication: Metabolic disorder
     Dosage: UNK
     Route: 042
     Dates: end: 20011117
  8. CLONAZEPAM [Suspect]
     Active Substance: CLONAZEPAM
     Indication: Epilepsy
     Dosage: 1 MG PRN
     Route: 048
     Dates: start: 20011112, end: 20011205
  9. RANITIDINE HYDROCHLORIDE [Suspect]
     Active Substance: RANITIDINE HYDROCHLORIDE
     Indication: Prophylaxis
     Dosage: UNK
     Route: 042
     Dates: start: 20011123, end: 20011126
  10. HEPARIN SODIUM [Suspect]
     Active Substance: HEPARIN SODIUM
     Indication: Thrombosis prophylaxis
     Dosage: UNK
     Dates: start: 20011126, end: 20011203
  11. NADROPARIN CALCIUM [Suspect]
     Active Substance: NADROPARIN CALCIUM
     Indication: Thrombosis prophylaxis
     Dosage: UNK
     Route: 058
     Dates: start: 20011117, end: 20011124
  12. MIDAZOLAM MALEATE [Suspect]
     Active Substance: MIDAZOLAM MALEATE
     Indication: Pain
     Dosage: UNK
     Route: 048
     Dates: start: 20011113, end: 20011117
  13. CILASTATIN SODIUM\IMIPENEM [Concomitant]
     Active Substance: CILASTATIN SODIUM\IMIPENEM
     Indication: Infection
     Dosage: 1500 MG, QD(3 SEPARATED DOSES)
     Route: 042
     Dates: end: 20011113
  14. FENTANYL [Concomitant]
     Active Substance: FENTANYL\FENTANYL CITRATE
     Indication: Pain
     Dosage: DOSE WAS ALSO REPORTED AS 1.5 MG. DAILY DOSE=3 AMPULE
     Route: 042
     Dates: start: 20011120, end: 20011120
  15. EGG PHOSPHOLIPIDS\GLYCERIN\SOYBEAN OIL [Suspect]
     Active Substance: EGG PHOSPHOLIPIDS\GLYCERIN\SOYBEAN OIL
     Indication: Parenteral nutrition
     Dosage: 250 ML, QD(DAILY, PRN.)
     Route: 042
     Dates: start: 20011121, end: 20011205
  16. VANCOMYCIN [Concomitant]
     Active Substance: VANCOMYCIN
     Indication: Infection
     Dosage: 500 MG
     Dates: end: 20011113
  17. CIPROFLOXACIN [Suspect]
     Active Substance: CIPROFLOXACIN
     Indication: Infection
     Dosage: 400 MG, QD(2 SEPARATED DOSES)
     Route: 042
     Dates: start: 20011121, end: 20011123
  18. DOBUTAMINE HYDROCHLORIDE [Concomitant]
     Active Substance: DOBUTAMINE HYDROCHLORIDE
     Indication: Cardiac failure
     Dosage: 250 MG, QD
     Route: 042
     Dates: start: 20011121, end: 20011121
  19. MULTIBIONTA [ASCORBIC ACID;BIOTIN;CALCIUM PANTOTHENATE;CYANOCOBALAMIN; [Concomitant]
     Indication: Hypovitaminosis
     Dosage: UNK
     Dates: start: 20011205, end: 20011205
  20. NOVODIGAL (.BETA.-ACETYLDIGOXIN) [Suspect]
     Active Substance: .BETA.-ACETYLDIGOXIN
     Indication: Cardiac failure
     Dosage: 0.2 MG, QD
     Route: 042
     Dates: start: 20011121, end: 20011202
  21. URSODIOL [Suspect]
     Active Substance: URSODIOL
     Indication: Cholelithiasis
     Dosage: 3 DF QD
     Dates: start: 20011123, end: 20011128
  22. IRON [Concomitant]
     Active Substance: IRON
     Indication: Iron deficiency
     Dosage: DAILY DOSE=1 AMPULE
     Route: 042
     Dates: end: 20011116
  23. KETAMIN [KETAMINE HYDROCHLORIDE] [Concomitant]
     Indication: Pain
     Dosage: UNK
     Route: 042
     Dates: start: 20011113, end: 20011117
  24. ORNITHINE ASPARTATE [Suspect]
     Active Substance: ORNITHINE ASPARTATE
     Indication: Liver disorder
     Dosage: 4 DF, QD 4 SEPARATED DOSES
     Route: 048
     Dates: start: 20011124, end: 20011128
  25. ALBUMIN HUMAN [Concomitant]
     Active Substance: ALBUMIN HUMAN
     Dosage: 200 ML
     Dates: start: 20011121, end: 20011124
  26. ALBUMIN HUMAN [Concomitant]
     Active Substance: ALBUMIN HUMAN
     Indication: Fluid replacement
     Dosage: 100 ML
     Dates: end: 20011116
  27. ACTRAPID [Suspect]
     Active Substance: INSULIN HUMAN
     Indication: Metabolic disorder
     Dosage: UNK
     Route: 042
     Dates: start: 20011124, end: 20011202
  28. PANTOZOL [Concomitant]
     Active Substance: PANTOPRAZOLE SODIUM
     Indication: Prophylaxis against gastrointestinal ulcer
     Dosage: UNK
     Route: 042
     Dates: end: 20011121
  29. KONAKION [Concomitant]
     Active Substance: PHYTONADIONE
     Indication: Vitamin K deficiency
     Dosage: DOSE WAS ALSO REPORTED AS 2 MG.
     Dates: end: 20011113
  30. NYSTATIN [Concomitant]
     Active Substance: NYSTATIN
     Indication: Candida infection
     Dosage: FREQUENCY: SEVERAL TIMES A DAY.
     Route: 061
     Dates: end: 20011202
  31. NOVALGIN (METAMIZOLE SODIUM) [Suspect]
     Active Substance: METAMIZOLE SODIUM
     Indication: Pain
     Dosage: 2 G PRN
     Route: 042
     Dates: start: 20011128, end: 20011202
  32. HEPARIN [Concomitant]
     Active Substance: HEPARIN SODIUM
     Indication: Thrombosis prophylaxis
     Dosage: UNK
     Dates: start: 20011109, end: 20011109
  33. PREDNISOLONE [Concomitant]
     Active Substance: PREDNISOLONE
     Indication: Colitis ulcerative
     Dosage: UNK
     Route: 042
     Dates: end: 20011205
  34. LASIX [Suspect]
     Active Substance: FUROSEMIDE
     Indication: Oedema
     Dosage: UNK
     Dates: end: 20011126
  35. VITAMIN B1 [Concomitant]
     Active Substance: THIAMINE HYDROCHLORIDE
     Indication: Vitamin B1 deficiency
     Dosage: DOSE: REPORTED AS 100. 2 SEPARATED DOSES
     Route: 048
     Dates: end: 20011126
  36. DEXTROSE [Concomitant]
     Active Substance: DEXTROSE\DEXTROSE MONOHYDRATE
     Indication: Fluid replacement
     Dosage: DOSE REGIMEN WAS REPORTED AS : 5% AT 2000 ML / DAY, 40% AT 500 ML / DAY AND 70 % AT 2000 ML /DAY.
     Route: 042
     Dates: end: 20011205
  37. SODIUM CHLORIDE [Concomitant]
     Active Substance: SODIUM CHLORIDE
     Indication: Fluid replacement
     Dosage: UNK
     Route: 042
     Dates: end: 20011130
  38. METOCLOPRAMIDE HYDROCHLORIDE [Concomitant]
     Active Substance: METOCLOPRAMIDE HYDROCHLORIDE
     Indication: Nausea
     Dosage: DAILY DOSE=1 AMPULE
     Route: 042
     Dates: start: 20011113, end: 20011117
  39. VITINTRA [ERGOCALCIFEROL;PHYTOMENADIONE;RETINOL PALMITATE;TOCOPHEROL] [Concomitant]
     Indication: Parenteral nutrition
     Dosage: 1 AMPULE PER DAY PRN
     Dates: start: 20011121, end: 20011205
  40. FOSFOMYCIN CALCIUM [Suspect]
     Active Substance: FOSFOMYCIN CALCIUM
     Indication: Infection
     Dosage: UNK
     Dates: start: 20011130, end: 20011205
  41. LAMICTAL [Suspect]
     Active Substance: LAMOTRIGINE
     Indication: Epilepsy
     Dosage: 37.5 MG, QD
     Route: 048
     Dates: start: 20011118, end: 20011124
  42. PIRITRAMIDE [Concomitant]
     Active Substance: PIRITRAMIDE
     Dosage: 3 MG, TID
     Route: 042
     Dates: start: 20011205
  43. PIRITRAMIDE [Concomitant]
     Active Substance: PIRITRAMIDE
     Indication: Pain
     Dosage: 3 MG, QD
     Route: 042
     Dates: start: 20011121
  44. XYLOMETAZOLINE HYDROCHLORIDE [Concomitant]
     Active Substance: XYLOMETAZOLINE HYDROCHLORIDE
     Indication: Nasopharyngitis
     Dosage: 3 DF
     Dates: end: 20011130
  45. BRICANYL [Concomitant]
     Active Substance: TERBUTALINE SULFATE
     Indication: Respiratory tract congestion
     Dosage: FREQUENCY: PRN. UNIT DOSE=.5 AMPULE
     Route: 042
     Dates: end: 20011112
  46. VALPROIC ACID [Concomitant]
     Active Substance: VALPROIC ACID
     Indication: Epilepsy
     Dosage: 800 MG, QD(2 SEPARATED DOSES)
     Route: 042
     Dates: end: 20011115
  47. CLAFORAN [Suspect]
     Active Substance: CEFOTAXIME SODIUM
     Indication: Infection
     Dosage: 6 G, QD(3 SEPARATED DOSES)
     Route: 058
     Dates: start: 20011130, end: 20011201
  48. SULFAMETHOXAZOLE\TRIMETHOPRIM [Suspect]
     Active Substance: SULFAMETHOXAZOLE\TRIMETHOPRIM
     Indication: Infection
     Dosage: 1920 MG, QD(2 SEPARATED DOSES)
     Route: 042
     Dates: start: 20011116, end: 20011120
  49. DIFLUCAN [Suspect]
     Active Substance: FLUCONAZOLE
     Indication: Candida infection
     Dosage: UNK
     Route: 042
     Dates: start: 20011118, end: 20011120
  50. NUTRIFLEX [AMINO ACIDS NOS;CARBOHYDRATES NOS;ELECTROLYTES NOS] [Concomitant]
     Indication: Parenteral nutrition
     Dosage: UNK
     Dates: end: 20011123
  51. TAVOR (LORAZEPAM) [Suspect]
     Active Substance: LORAZEPAM
     Indication: Agitation
     Dosage: 3 MG, QD (3 SEPARATED DOSES)
     Route: 048
     Dates: start: 20011118, end: 20011202
  52. THEOPHYLLINE [Suspect]
     Active Substance: THEOPHYLLINE
     Indication: Bronchospasm
     Dosage: DOSE: 6 MG/HR.
     Route: 042
     Dates: start: 20011205
  53. LACTULOSE [Suspect]
     Active Substance: LACTULOSE
     Indication: Constipation
     Dosage: 240 ML, QD
     Route: 048
     Dates: start: 20011128, end: 20011205
  54. AMINO ACIDS, SOURCE UNSPECIFIED [Suspect]
     Active Substance: AMINO ACIDS, SOURCE UNSPECIFIED
     Indication: Parenteral nutrition
     Dosage: UNK
     Dates: start: 20011124, end: 20011130
  55. AKINETON [Concomitant]
     Active Substance: BIPERIDEN HYDROCHLORIDE
     Indication: Extrapyramidal disorder
     Dosage: 5 MG, QD(2 SEPARATED DOSES)
     Route: 042
     Dates: end: 20011113
  56. METRONIDAZOLE [Concomitant]
     Active Substance: METRONIDAZOLE
     Indication: Infection
     Dosage: 1500 MG
     Dates: start: 20011115, end: 20011120
  57. CALCIUM [Concomitant]
     Active Substance: CALCIUM
     Indication: Calcium deficiency
     Dosage: DOSAGE REGIMEN:  26 NOV 2001:10 ML / DAY OF 20% AMPOULE WAS DISCONTINUED. 05 DEC 2001: 1 AMPOULE OF+
     Route: 042
  58. FERRLECIT [Suspect]
     Active Substance: SODIUM FERRIC GLUCONATE COMPLEX
     Indication: Iron deficiency
     Dosage: DAILY DOSE=1 AMPULE
     Route: 042
     Dates: start: 20011205, end: 20011205
  59. KETAMINE HYDROCHLORIDE [Suspect]
     Active Substance: KETAMINE HYDROCHLORIDE
     Indication: Stupor
     Dosage: UNK
     Dates: start: 20011205, end: 20011205
  60. XANEF [ENALAPRILAT] [Concomitant]
     Indication: Cardiac failure
     Dosage: UNK
     Dates: end: 20011202
  61. VITAMIN B COMPLEX [Concomitant]
     Active Substance: CYANOCOBALAMIN\DEXPANTHENOL\NIACINAMIDE\PYRIDOXINE HYDROCHLORIDE\RIBOFLAVIN 5^-PHOSPHATE SODIUM\THIA
     Indication: Vitamin B complex deficiency
  62. LAMICTAL [Suspect]
     Active Substance: LAMOTRIGINE
     Indication: Epilepsy
     Dosage: 12.5 MG, QD
     Dates: start: 20011112, end: 20011114

REACTIONS (3)
  - Stevens-Johnson syndrome [Recovered/Resolved]
  - Toxic epidermal necrolysis [Recovered/Resolved]
  - Sepsis [Recovered/Resolved]

NARRATIVE: CASE EVENT DATE: 20011128
